FAERS Safety Report 8505514-0 (Version None)
Quarter: 2012Q3

REPORT INFORMATION
  Report Type: 
  Country: None (occurrence: None)
  Receive Date: 20120703
  Receipt Date: 20120628
  Transmission Date: 20120928
  Serious: Yes (Other)
  Sender: FDA-Public Use
  Company Number: 2012SP027246

PATIENT
  Age: 67 Year
  Sex: Male
  Weight: 75 kg

DRUGS (13)
  1. FEROTYM [Concomitant]
  2. TELAVIC (ANTIVIRALS NOS) [Suspect]
     Indication: HEPATITIS C
     Dosage: 1500 MG;QD;PO ; 1500 MG;QD;PO
     Route: 048
     Dates: start: 20120404, end: 20120530
  3. TELAVIC (ANTIVIRALS NOS) [Suspect]
     Indication: HEPATITIS C
     Dosage: 1500 MG;QD;PO ; 1500 MG;QD;PO
     Route: 048
     Dates: start: 20120306, end: 20120322
  4. EPADEL S [Concomitant]
  5. CLARITIN REDITABS [Concomitant]
  6. PEG-INTRON [Suspect]
     Indication: HEPATITIS C
     Dosage: 1.5 MCG/KG;SC ; 1.5 MCG/KG;SC
     Route: 058
     Dates: start: 20120306, end: 20120314
  7. PEG-INTRON [Suspect]
     Indication: HEPATITIS C
     Dosage: 1.5 MCG/KG;SC ; 1.5 MCG/KG;SC
     Route: 058
     Dates: start: 20120404
  8. REBETOL [Suspect]
     Indication: HEPATITIS C
     Dosage: 800 MG;QD;PO ; 800 MG;QD;PO ; 600 MG;QD;PO ; 400 MG;QD;PO ; 600 MG;QD;PO
     Route: 048
     Dates: start: 20120404, end: 20120501
  9. REBETOL [Suspect]
     Indication: HEPATITIS C
     Dosage: 800 MG;QD;PO ; 800 MG;QD;PO ; 600 MG;QD;PO ; 400 MG;QD;PO ; 600 MG;QD;PO
     Route: 048
     Dates: start: 20120523
  10. REBETOL [Suspect]
     Indication: HEPATITIS C
     Dosage: 800 MG;QD;PO ; 800 MG;QD;PO ; 600 MG;QD;PO ; 400 MG;QD;PO ; 600 MG;QD;PO
     Route: 048
     Dates: start: 20120502, end: 20120508
  11. REBETOL [Suspect]
     Indication: HEPATITIS C
     Dosage: 800 MG;QD;PO ; 800 MG;QD;PO ; 600 MG;QD;PO ; 400 MG;QD;PO ; 600 MG;QD;PO
     Route: 048
     Dates: start: 20120306, end: 20120322
  12. REBETOL [Suspect]
     Indication: HEPATITIS C
     Dosage: 800 MG;QD;PO ; 800 MG;QD;PO ; 600 MG;QD;PO ; 400 MG;QD;PO ; 600 MG;QD;PO
     Route: 048
     Dates: start: 20120509, end: 20120522
  13. LIVALO [Concomitant]

REACTIONS (5)
  - PYELONEPHRITIS [None]
  - PLATELET COUNT DECREASED [None]
  - PRURITUS [None]
  - RASH [None]
  - ANAEMIA [None]
